FAERS Safety Report 8822480 (Version 6)
Quarter: 2012Q4

REPORT INFORMATION
  Report Type: Report from Study
  Country: US (occurrence: US)
  Receive Date: 20121003
  Receipt Date: 20121129
  Transmission Date: 20130627
  Serious: Yes (Hospitalization, Other)
  Sender: FDA-Public Use
  Company Number: US-JNJFOC-20121000669

PATIENT
  Age: 13 Year
  Sex: Male
  Weight: 44 kg

DRUGS (4)
  1. REMICADE [Suspect]
     Indication: CROHN^S DISEASE
     Route: 042
     Dates: start: 20090306
  2. HUMIRA [Concomitant]
     Dates: start: 20091111
  3. 5ASA [Concomitant]
     Route: 048
  4. PARENTERAL NUTRITIONAL SUPPORT [Concomitant]

REACTIONS (2)
  - Failure to thrive [Not Recovered/Not Resolved]
  - Pneumonia aspiration [Recovered/Resolved]
